FAERS Safety Report 11380320 (Version 1)
Quarter: 2015Q3

REPORT INFORMATION
  Report Type: Spontaneous
  Country: US (occurrence: None)
  Receive Date: 20150813
  Receipt Date: 20150813
  Transmission Date: 20151125
  Serious: Yes (Other)
  Sender: FDA-Public Use
  Company Number: None

PATIENT
  Age: 62 Year
  Sex: Male

DRUGS (1)
  1. RIBASPHERE [Suspect]
     Active Substance: RIBAVIRIN
     Indication: CHRONIC HEPATITIS C
     Dosage: 2 TABLETS QAM + QPM
     Route: 048
     Dates: start: 20150610, end: 20150729

REACTIONS (2)
  - Urinary tract infection [None]
  - Red blood cell count decreased [None]

NARRATIVE: CASE EVENT DATE: 20150729
